FAERS Safety Report 21724806 (Version 1)
Quarter: 2022Q4

REPORT INFORMATION
  Report Type: Spontaneous
  Country: TW (occurrence: TW)
  Receive Date: 20221214
  Receipt Date: 20221214
  Transmission Date: 20230113
  Serious: Yes (Other)
  Sender: FDA-Public Use
  Company Number: TW-SUN PHARMACEUTICAL INDUSTRIES LTD-2022RR-368421

PATIENT
  Age: 51 Year
  Sex: Female

DRUGS (1)
  1. FINGOLIMOD [Suspect]
     Active Substance: FINGOLIMOD
     Indication: Multiple sclerosis
     Dosage: 0.5 MILLIGRAM, DAILY
     Route: 048
     Dates: start: 2012, end: 2018

REACTIONS (2)
  - Disease recurrence [Unknown]
  - Disease progression [Unknown]
